FAERS Safety Report 5875296-X (Version None)
Quarter: 2008Q3

REPORT INFORMATION
  Report Type: 
  Country: None (occurrence: None)
  Receive Date: 20080909
  Receipt Date: 20080828
  Transmission Date: 20090109
  Serious: Yes (Hospitalization)
  Sender: FDA-Public Use
  Company Number: GB-MERCK-0809GBR00015

PATIENT
  Age: 4 Year

DRUGS (2)
  1. DECADRON SRC [Suspect]
     Indication: ACUTE LYMPHOCYTIC LEUKAEMIA
     Route: 048
  2. ANTINEOPLASTIC (UNSPECIFIED) [Suspect]
     Route: 065

REACTIONS (2)
  - BLOOD IMMUNOGLOBULIN G DECREASED [None]
  - VARICELLA [None]
